FAERS Safety Report 9877743 (Version 4)
Quarter: 2014Q2

REPORT INFORMATION
  Report Type: Spontaneous
  Country: US (occurrence: US)
  Receive Date: 20140206
  Receipt Date: 20140414
  Transmission Date: 20141212
  Serious: Yes (Death, Hospitalization)
  Sender: FDA-Public Use
  Company Number: US-INCYTE CORPORATION-2014IN000255

PATIENT
  Age: 73 Year
  Sex: Female

DRUGS (2)
  1. JAKAFI [Suspect]
     Indication: MYELOFIBROSIS
     Dosage: 25 MG, QD
     Route: 048
     Dates: start: 20131212, end: 20140228
  2. JAKAFI [Suspect]
     Dosage: 25 MG, BID
     Route: 048

REACTIONS (2)
  - Death [Fatal]
  - Herpes zoster [Unknown]
